FAERS Safety Report 5376930-3 (Version None)
Quarter: 2007Q3

REPORT INFORMATION
  Report Type: 
  Country: None (occurrence: None)
  Receive Date: 20070703
  Receipt Date: 20070620
  Transmission Date: 20080115
  Serious: Yes (Hospitalization)
  Sender: FDA-Public Use
  Company Number: FR-BAYER-200710343BFR

PATIENT
  Age: 58 Year
  Sex: Male
  Weight: 85 kg

DRUGS (22)
  1. SORAFENIB OR PLACEBO [Suspect]
     Indication: NON-SMALL CELL LUNG CANCER
     Dosage: TOTAL DAILY DOSE: 800 MG  UNIT DOSE: 200 MG
     Route: 048
     Dates: start: 20070522, end: 20070531
  2. SORAFENIB OR PLACEBO [Suspect]
     Route: 048
     Dates: start: 20070619
  3. GEMCITABINE HCL [Suspect]
     Indication: NON-SMALL CELL LUNG CANCER
     Route: 042
     Dates: start: 20070522, end: 20070522
  4. GEMCITABINE HCL [Suspect]
     Route: 042
     Dates: start: 20070619, end: 20070619
  5. GEMCITABINE HCL [Suspect]
     Route: 042
     Dates: start: 20070612, end: 20070612
  6. CISPLATIN [Suspect]
     Indication: NON-SMALL CELL LUNG CANCER
     Route: 042
     Dates: start: 20070522, end: 20070522
  7. CISPLATIN [Suspect]
     Route: 042
     Dates: start: 20070612, end: 20070612
  8. COTAREG [Concomitant]
     Indication: HYPERTENSION
     Route: 048
     Dates: start: 20070517, end: 20070530
  9. NEOCODION [Concomitant]
     Indication: COUGH
     Route: 048
     Dates: start: 20070515, end: 20070612
  10. DOLIPRANE [Concomitant]
     Indication: CHEST PAIN
     Route: 048
     Dates: start: 20070515, end: 20070522
  11. ANAUSIN [Concomitant]
     Indication: PROPHYLAXIS OF NAUSEA AND VOMITING
     Route: 048
     Dates: start: 20070523
  12. CORTANCYL [Concomitant]
     Indication: PROPHYLAXIS
     Route: 048
     Dates: start: 20070523, end: 20070524
  13. ATARAX [Concomitant]
     Indication: PROPHYLAXIS
     Route: 048
     Dates: start: 20070530
  14. TRIFLUCAN [Concomitant]
     Indication: ORAL CANDIDIASIS
     Route: 048
     Dates: start: 20070523, end: 20070530
  15. EMEND [Concomitant]
     Indication: PROPHYLAXIS OF NAUSEA AND VOMITING
     Route: 048
     Dates: start: 20070523, end: 20070524
  16. EMEND [Concomitant]
     Route: 048
     Dates: start: 20070522, end: 20070522
  17. ZOFRAN [Concomitant]
     Indication: PROPHYLAXIS OF NAUSEA AND VOMITING
     Route: 042
     Dates: start: 20070522, end: 20070523
  18. PLITICAN [Concomitant]
     Indication: PROPHYLAXIS OF NAUSEA AND VOMITING
     Route: 042
     Dates: start: 20070522, end: 20070522
  19. DEXAMETHASONE 0.5MG TAB [Concomitant]
     Indication: PROPHYLAXIS
     Route: 042
     Dates: start: 20070522, end: 20070522
  20. INIPOMP [Concomitant]
     Indication: THROMBOSIS PROPHYLAXIS
     Route: 058
     Dates: start: 20070531, end: 20070601
  21. DUPHALAC [Concomitant]
     Indication: CONSTIPATION
     Route: 048
     Dates: start: 20070620
  22. ZANTAC [Concomitant]
     Indication: PROPHYLAXIS AGAINST GASTROINTESTINAL ULCER
     Route: 048
     Dates: start: 20070620

REACTIONS (5)
  - ALANINE AMINOTRANSFERASE INCREASED [None]
  - ANOREXIA [None]
  - DIARRHOEA [None]
  - MUCOSAL INFLAMMATION [None]
  - WEIGHT DECREASED [None]
